FAERS Safety Report 7206548-9 (Version None)
Quarter: 2011Q1

REPORT INFORMATION
  Report Type: 
  Country: None (occurrence: None)
  Receive Date: 20110103
  Receipt Date: 20101221
  Transmission Date: 20110831
  Serious: Yes (Other)
  Sender: FDA-Public Use
  Company Number: PHHY2010AT84099

PATIENT
  Age: 87 Year
  Sex: Female
  Weight: 69 kg

DRUGS (4)
  1. DIOVAN TRIPLE [Suspect]
     Indication: HYPERTENSION
     Dosage: 10/160 MG
     Route: 048
     Dates: start: 20100623
  2. ZURCAL [Concomitant]
     Dosage: UNK
  3. MODURETIC 5-50 [Concomitant]
     Dosage: 5 G ONCE
  4. SEROPRAM [Concomitant]
     Dosage: UNK

REACTIONS (3)
  - HEAT OEDEMA [None]
  - OEDEMA PERIPHERAL [None]
  - HYPERTENSION [None]
